FAERS Safety Report 5508542-2 (Version None)
Quarter: 2007Q4

REPORT INFORMATION
  Report Type: 
  Country: None (occurrence: None)
  Receive Date: 20071105
  Receipt Date: 20071019
  Transmission Date: 20080405
  Serious: Yes (Hospitalization)
  Sender: FDA-Public Use
  Company Number: FR-1164406

PATIENT
  Age: 1 Month

DRUGS (1)
  1. ATROPINE SULFATE [Suspect]
     Dosage: 4 GTT ONCE
     Route: 048
     Dates: start: 20071005, end: 20071005

REACTIONS (3)
  - ACCIDENTAL EXPOSURE [None]
  - ANTICHOLINERGIC SYNDROME [None]
  - MEDICATION ERROR [None]
